FAERS Safety Report 18165914 (Version 2)
Quarter: 2021Q4

REPORT INFORMATION
  Report Type: Spontaneous
  Country: US (occurrence: US)
  Receive Date: 20200818
  Receipt Date: 20211004
  Transmission Date: 20220303
  Serious: No
  Sender: FDA-Public Use
  Company Number: US-OTSUKA-2018_021255

PATIENT
  Sex: Female

DRUGS (24)
  1. ABILIFY [Suspect]
     Active Substance: ARIPIPRAZOLE
     Indication: Major depression
     Dosage: 20 MG, QD
     Route: 065
     Dates: start: 201008, end: 201708
  2. ABILIFY [Suspect]
     Active Substance: ARIPIPRAZOLE
     Indication: Post-traumatic stress disorder
     Dosage: 2 MG, QD (2 TABLET BEDTIME)
     Route: 048
     Dates: start: 20100819, end: 20110820
  3. ABILIFY [Suspect]
     Active Substance: ARIPIPRAZOLE
     Indication: Mental disorder
     Dosage: 2 MG, QD (2 TABLET BEDTIME)
     Route: 048
     Dates: start: 20110407, end: 20121107
  4. ABILIFY [Suspect]
     Active Substance: ARIPIPRAZOLE
     Dosage: 2 MG, QD (2 TABLET BEDTIME)
     Route: 048
     Dates: start: 20111110, end: 20121110
  5. ABILIFY [Suspect]
     Active Substance: ARIPIPRAZOLE
     Dosage: UNK UNK, QD, (10 MG ONE HALF TABLET IN THE EVENING)
     Route: 048
     Dates: start: 20120709, end: 20130710
  6. ABILIFY [Suspect]
     Active Substance: ARIPIPRAZOLE
     Dosage: 20 MG, BID
     Route: 048
     Dates: start: 20121011, end: 20131012
  7. ABILIFY [Suspect]
     Active Substance: ARIPIPRAZOLE
     Dosage: UNK UNK, QD, (20 MG ONE HALF TABLET IN THE EVENING)
     Route: 048
     Dates: start: 20120823, end: 20130824
  8. ABILIFY [Suspect]
     Active Substance: ARIPIPRAZOLE
     Dosage: UNK UNK, QD, (20 MG ONE HALF TABLET IN THE EVENING)
     Route: 048
     Dates: start: 20121115, end: 20131116
  9. ABILIFY [Suspect]
     Active Substance: ARIPIPRAZOLE
     Dosage: 20 MG QD, BED TIME
     Route: 048
     Dates: start: 20121220, end: 20131221
  10. ABILIFY [Suspect]
     Active Substance: ARIPIPRAZOLE
     Dosage: 20 MG QD, BED TIME
     Route: 048
     Dates: start: 20130408, end: 20140409
  11. ABILIFY [Suspect]
     Active Substance: ARIPIPRAZOLE
     Dosage: 20 MG QD, BED TIME
     Route: 048
     Dates: start: 20130722, end: 20140723
  12. ABILIFY [Suspect]
     Active Substance: ARIPIPRAZOLE
     Dosage: 20 MG QD, BED TIME
     Route: 048
     Dates: start: 20131123, end: 20141127
  13. ABILIFY [Suspect]
     Active Substance: ARIPIPRAZOLE
     Dosage: 20 MG QD, BED TIME
     Route: 048
     Dates: start: 20140225, end: 20150226
  14. ABILIFY [Suspect]
     Active Substance: ARIPIPRAZOLE
     Dosage: UNK UNK, QD, (10 MG, ONE HALF TABLET BY MOUTH AT BEDTIME)
     Route: 048
     Dates: start: 20140429, end: 20150430
  15. ABILIFY [Suspect]
     Active Substance: ARIPIPRAZOLE
     Dosage: UNK UNK, QD, (20 MG, ONE HALF TABLET BY MOUTH AT BEDTIME)
     Route: 048
     Dates: start: 20150410, end: 20160410
  16. ABILIFY [Suspect]
     Active Substance: ARIPIPRAZOLE
     Dosage: UNK UNK, QD, (20 MG ONE HALF TABLET BY MOUTH AT BEDTIME)
     Route: 048
     Dates: start: 20150716, end: 20160716
  17. ABILIFY [Suspect]
     Active Substance: ARIPIPRAZOLE
     Dosage: 20 MG, QD, AT BEDTIME
     Route: 048
     Dates: start: 20160426, end: 20160526
  18. ABILIFY [Suspect]
     Active Substance: ARIPIPRAZOLE
     Dosage: UNK UNK, QD, (20 MG ONE HALF TABLET BY MOUTH AT BEDTIME)
     Route: 048
     Dates: start: 20160601, end: 20160701
  19. ABILIFY [Suspect]
     Active Substance: ARIPIPRAZOLE
     Dosage: 20 MG, QD, AT BED TIME
     Route: 048
     Dates: start: 20160711, end: 20160810
  20. ABILIFY [Suspect]
     Active Substance: ARIPIPRAZOLE
     Dosage: UNK UNK, QD, 20 MG, ONE HALF TABLET BY MOUTH AT BEDTIME
     Route: 048
     Dates: start: 20150908, end: 20160908
  21. ABILIFY [Suspect]
     Active Substance: ARIPIPRAZOLE
     Dosage: UNK UNK, QD, 20 MG, ONE HALF TABLET BY MOUTH AT BEDTIME
     Route: 048
     Dates: start: 20151015, end: 20161015
  22. ABILIFY [Suspect]
     Active Substance: ARIPIPRAZOLE
     Dosage: 20 MG, QD, AT BEDTIME
     Route: 048
     Dates: start: 20160217, end: 20170217
  23. ABILIFY [Suspect]
     Active Substance: ARIPIPRAZOLE
     Dosage: 20 MG, QD, (BEDTIME)
     Route: 048
     Dates: start: 20161028, end: 20171029
  24. ABILIFY [Suspect]
     Active Substance: ARIPIPRAZOLE
     Dosage: 20 MG, QD
     Route: 048
     Dates: start: 20170720, end: 20180721

REACTIONS (17)
  - Injury [Unknown]
  - Red cell distribution width increased [Unknown]
  - Mean cell volume decreased [Unknown]
  - Mean cell haemoglobin decreased [Unknown]
  - Mental disorder [Unknown]
  - Emotional distress [Unknown]
  - Neuropsychiatric symptoms [Unknown]
  - Platelet count increased [Unknown]
  - Lymphocyte count decreased [Unknown]
  - Neutrophil count increased [Unknown]
  - White blood cell count increased [Unknown]
  - Obsessive-compulsive disorder [Unknown]
  - Compulsive sexual behaviour [Recovered/Resolved]
  - Aspartate aminotransferase increased [Unknown]
  - Gambling disorder [Recovered/Resolved]
  - Economic problem [Unknown]
  - Product use in unapproved indication [Unknown]

NARRATIVE: CASE EVENT DATE: 20120701
